FAERS Safety Report 6529760-0 (Version None)
Quarter: 2010Q1

REPORT INFORMATION
  Report Type: 
  Country: None (occurrence: None)
  Receive Date: 20100104
  Receipt Date: 20091222
  Transmission Date: 20100710
  Serious: Yes (Hospitalization)
  Sender: FDA-Public Use
  Company Number: 2009US004366

PATIENT
  Age: 39 Year
  Sex: Female
  Weight: 95 kg

DRUGS (8)
  1. ALEFACEPT (ALEFACEPT) INJECTION [Suspect]
     Indication: RENAL TRANSPLANT
     Dosage: SEE IMAGE
     Route: 042
     Dates: start: 20090124, end: 20091124
  2. ALEFACEPT (ALEFACEPT) INJECTION [Suspect]
     Indication: RENAL TRANSPLANT
     Dosage: SEE IMAGE
     Route: 042
     Dates: start: 20091127, end: 20091127
  3. ALEFACEPT (ALEFACEPT) INJECTION [Suspect]
     Indication: RENAL TRANSPLANT
     Dosage: SEE IMAGE
     Route: 042
     Dates: start: 20091130
  4. ALEFACEPT (ALEFACEPT) INJECTION [Suspect]
     Indication: RENAL TRANSPLANT
     Dosage: SEE IMAGE
     Route: 042
     Dates: start: 20091207
  5. PROGRAF [Concomitant]
  6. PREDNISONE [Concomitant]
  7. LASIX [Concomitant]
  8. BACTRIM [Concomitant]

REACTIONS (5)
  - FLUID OVERLOAD [None]
  - OEDEMA PERIPHERAL [None]
  - PAIN [None]
  - PERINEPHRIC COLLECTION [None]
  - TUBULOINTERSTITIAL NEPHRITIS [None]
